FAERS Safety Report 9782581 (Version 1)
Quarter: 2013Q4

REPORT INFORMATION
  Report Type: Spontaneous
  Country: US (occurrence: US)
  Receive Date: 20131226
  Receipt Date: 20131226
  Transmission Date: 20140711
  Serious: Yes (Hospitalization, Other)
  Sender: FDA-Public Use
  Company Number: US-SA-2013SA134319

PATIENT
  Sex: Female

DRUGS (1)
  1. PLAVIX [Suspect]
     Indication: VASCULAR GRAFT
     Route: 048

REACTIONS (4)
  - Adverse event [Unknown]
  - Pneumonia [Unknown]
  - Polyp [Unknown]
  - Sinusitis [Unknown]
